FAERS Safety Report 4881022-3 (Version None)
Quarter: 2005Q4

REPORT INFORMATION
  Report Type: 
  Country: None (occurrence: None)
  Receive Date: 20051223
  Receipt Date: 20050927
  Transmission Date: 20060501
  Serious: No
  Sender: FDA-Public Use
  Company Number: 05P-163-0312074-00

PATIENT
  Age: 74 Year
  Sex: Female
  Weight: 49.8957 kg

DRUGS (13)
  1. HUMIRA [Suspect]
     Indication: RHEUMATOID ARTHRITIS
     Dosage: 40 MG, 1 IN 2 WK, SUBCUTANEOUS
     Route: 058
     Dates: start: 20050224
  2. DIGOXIN [Concomitant]
  3. METOPROLOL SUCCINATE [Concomitant]
  4. NORVACE [Concomitant]
  5. ALPRAZOLAM [Concomitant]
  6. OMEPRAZOLE [Concomitant]
  7. MACLIZINE HCL [Concomitant]
  8. PARACETAMOL [Concomitant]
  9. CELECOXIB [Concomitant]
  10. PREDNISONE [Concomitant]
  11. VITAMINS [Concomitant]
  12. VITAMIN B-12 [Concomitant]
  13. CALCIUM GLUCONATE [Concomitant]

REACTIONS (2)
  - CYSTITIS [None]
  - FUNGAL INFECTION [None]
